FAERS Safety Report 10313166 (Version 1)
Quarter: 2014Q3

REPORT INFORMATION
  Report Type: Spontaneous
  Country: US (occurrence: None)
  Receive Date: 20140717
  Receipt Date: 20140717
  Transmission Date: 20150326
  Serious: Yes (Other)
  Sender: FDA-Public Use
  Company Number: None

PATIENT
  Age: 23 Year
  Sex: Male
  Weight: 56 kg

DRUGS (1)
  1. LIDOCAINE WITH EPINEPHRINE [Suspect]
     Active Substance: EPINEPHRINE BITARTRATE\LIDOCAINE HYDROCHLORIDE
     Indication: NASAL SEPTAL OPERATION
     Dosage: 5ML, ONCE PRIOR TO SURG, NASAL TURBINATE INJECTION

REACTIONS (1)
  - Electrocardiogram ST segment elevation [None]

NARRATIVE: CASE EVENT DATE: 20140710
